FAERS Safety Report 14698445 (Version 1)
Quarter: 2018Q1

REPORT INFORMATION
  Report Type: Report from Study
  Country: US (occurrence: US)
  Receive Date: 20180330
  Receipt Date: 20180330
  Transmission Date: 20180509
  Serious: Yes (Other)
  Sender: FDA-Public Use
  Company Number: US-ROCHE-2099093

PATIENT
  Age: 75 Year

DRUGS (8)
  1. PREDNISONE. [Suspect]
     Active Substance: PREDNISONE
     Indication: HAEMATOLOGICAL MALIGNANCY
     Dosage: 9 CYCLES
     Route: 065
  2. CYCLOPHOSPHAMIDE. [Suspect]
     Active Substance: CYCLOPHOSPHAMIDE
     Indication: HAEMATOLOGICAL MALIGNANCY
     Dosage: 9 CYCLES
     Route: 065
  3. IFOSFAMIDE. [Suspect]
     Active Substance: IFOSFAMIDE
     Indication: HAEMATOLOGICAL MALIGNANCY
     Dosage: 9 CYCLES
     Route: 065
  4. RITUXIMAB. [Suspect]
     Active Substance: RITUXIMAB
     Indication: HAEMATOLOGICAL MALIGNANCY
     Dosage: 9 CYCLES
     Route: 065
  5. VINCRISTINE [Suspect]
     Active Substance: VINCRISTINE
     Indication: HAEMATOLOGICAL MALIGNANCY
     Dosage: 9 CYCLES
     Route: 065
  6. ETOPOSIDE. [Suspect]
     Active Substance: ETOPOSIDE
     Indication: HAEMATOLOGICAL MALIGNANCY
     Dosage: 9 CYCLES
     Route: 065
  7. DOXORUBICIN [Suspect]
     Active Substance: DOXORUBICIN
     Indication: HAEMATOLOGICAL MALIGNANCY
     Dosage: 9 CYCLES
     Route: 065
  8. CARBOPLATIN. [Suspect]
     Active Substance: CARBOPLATIN
     Indication: HAEMATOLOGICAL MALIGNANCY
     Dosage: 9 CYCLES
     Route: 065

REACTIONS (2)
  - Ejection fraction decreased [Unknown]
  - Cardiomyopathy [Unknown]
